FAERS Safety Report 5193212-3 (Version None)
Quarter: 2006Q4

REPORT INFORMATION
  Report Type: 
  Country: None (occurrence: None)
  Receive Date: 20061228
  Receipt Date: 20060601
  Transmission Date: 20070319
  Serious: No
  Sender: FDA-Public Use
  Company Number: US-GLAXOSMITHKLINE-A0611440A

PATIENT
  Age: 70 Year
  Sex: Male
  Weight: 76.8 kg

DRUGS (4)
  1. AVODART [Suspect]
     Indication: BENIGN PROSTATIC HYPERPLASIA
     Dosage: .5MG PER DAY
     Route: 048
  2. ASPIRIN [Concomitant]
     Dosage: 81MG PER DAY
     Route: 048
     Dates: start: 20030101
  3. ZOCOR [Concomitant]
     Dosage: 40MG PER DAY
     Route: 048
     Dates: start: 20030101
  4. FLOMAX [Concomitant]
     Route: 048
     Dates: start: 20040101

REACTIONS (2)
  - BREAST PAIN [None]
  - GYNAECOMASTIA [None]
